FAERS Safety Report 10622006 (Version 2)
Quarter: 2014Q4

REPORT INFORMATION
  Report Type: Other
  Country: FR (occurrence: FR)
  Receive Date: 20141203
  Receipt Date: 20141203
  Transmission Date: 20150529
  Serious: Yes (Other)
  Sender: FDA-Public Use
  Company Number: FR-ASTELLAS-2014US015768

PATIENT
  Sex: Female

DRUGS (2)
  1. TETRALYSAL                         /00052901/ [Suspect]
     Active Substance: LYMECYCLINE
     Indication: PRODUCT USED FOR UNKNOWN INDICATION
     Route: 065
  2. ERLOTINIB [Suspect]
     Active Substance: ERLOTINIB
     Indication: EGFR GENE MUTATION
     Route: 048
     Dates: start: 20140725

REACTIONS (7)
  - Transaminases increased [Unknown]
  - Xerosis [Unknown]
  - Skin fissures [Unknown]
  - Diarrhoea [Unknown]
  - Eosinophilia [Unknown]
  - Palmar-plantar erythrodysaesthesia syndrome [Recovering/Resolving]
  - Rash pustular [Unknown]

NARRATIVE: CASE EVENT DATE: 201408
